FAERS Safety Report 17094035 (Version 1)
Quarter: 2019Q4

REPORT INFORMATION
  Report Type: Report from Study
  Country: ES (occurrence: ES)
  Receive Date: 20191129
  Receipt Date: 20191129
  Transmission Date: 20200122
  Serious: Yes (Hospitalization, Other)
  Sender: FDA-Public Use
  Company Number: ES-GLAXOSMITHKLINE-ES2019215949

PATIENT
  Age: 87 Year
  Sex: Female

DRUGS (2)
  1. CEFUROXIME. [Suspect]
     Active Substance: CEFUROXIME
     Indication: PRODUCT USED FOR UNKNOWN INDICATION
     Dosage: UNK
     Route: 065
     Dates: start: 201704, end: 201705
  2. ALLOPURINOL. [Suspect]
     Active Substance: ALLOPURINOL
     Indication: PRODUCT USED FOR UNKNOWN INDICATION
     Dosage: UNK
     Route: 065
     Dates: start: 2017, end: 201705

REACTIONS (1)
  - Cholestasis [Unknown]

NARRATIVE: CASE EVENT DATE: 201704
